FAERS Safety Report 12893884 (Version 1)
Quarter: 2016Q4

REPORT INFORMATION
  Report Type: Spontaneous
  Country: SE (occurrence: SE)
  Receive Date: 20161028
  Receipt Date: 20161028
  Transmission Date: 20170207
  Serious: Yes (Hospitalization)
  Sender: FDA-Public Use
  Company Number: SE-009507513-1610SWE013395

PATIENT
  Age: 82 Year
  Sex: Male

DRUGS (10)
  1. LEVAXIN [Concomitant]
     Active Substance: LEVOTHYROXINE SODIUM
  2. INOLAXOL [Concomitant]
  3. ELOCON [Concomitant]
     Active Substance: MOMETASONE FUROATE
  4. EZETROL 10 MG TABLETTER [Suspect]
     Active Substance: EZETIMIBE
     Indication: LIPIDS INCREASED
     Dosage: 10 MG, QD
     Route: 048
  5. CANODERM [Concomitant]
  6. VISCOTEARS [Concomitant]
     Active Substance: CARBOMER
     Dosage: CONCENTRATION: 2 MG/G
  7. SILDENAFIL CITRATE. [Concomitant]
     Active Substance: SILDENAFIL CITRATE
  8. PREDNISOLONE. [Concomitant]
     Active Substance: PREDNISOLONE
  9. TROMBYL [Concomitant]
     Active Substance: ASPIRIN
  10. ENALAPRIL [Concomitant]
     Active Substance: ENALAPRIL

REACTIONS (1)
  - Amylase increased [Unknown]

NARRATIVE: CASE EVENT DATE: 20160915
